FAERS Safety Report 9820495 (Version 3)
Quarter: 2014Q1

REPORT INFORMATION
  Report Type: Spontaneous
  Country: CA (occurrence: CA)
  Receive Date: 20140116
  Receipt Date: 20140325
  Transmission Date: 20141002
  Serious: Yes (Other)
  Sender: FDA-Public Use
  Company Number: CA-BEH-2013039132

PATIENT
  Age: 7 Year
  Sex: Male
  Weight: 25 kg

DRUGS (5)
  1. PRIVIGEN [Suspect]
     Dosage: 8 ML/H FOR 30 MINUTES, THEN 16 ML/H FOR 30 MINUTES, THEN 45 ML/H FOR REMAINDER OF INFUSION
     Route: 042
     Dates: start: 20131106, end: 20131107
  2. PRIVIGEN [Suspect]
     Dosage: START 8 ML/H UP TO 45 ML/H
     Route: 042
     Dates: start: 20131106, end: 20131106
  3. PRIVIGEN [Suspect]
     Indication: KAWASAKI^S DISEASE
     Dosage: START 8 ML/H UP TO 45 ML/H
     Route: 042
     Dates: start: 20131106, end: 20131106
  4. PRIVIGEN [Suspect]
     Dosage: START 8 ML/H UP TO 45 ML/H
     Route: 042
     Dates: start: 20131106, end: 20131106
  5. TYLENOL [Concomitant]
     Route: 048
     Dates: start: 20131106

REACTIONS (12)
  - Meningitis aseptic [Recovered/Resolved]
  - Pyrexia [Recovered/Resolved]
  - Headache [Recovered/Resolved]
  - Neck pain [Recovered/Resolved]
  - Nausea [Recovered/Resolved]
  - Vomiting [Recovered/Resolved]
  - Chills [Recovered/Resolved]
  - Photophobia [Recovered/Resolved]
  - Paraesthesia [Recovered/Resolved]
  - Post lumbar puncture syndrome [Unknown]
  - Vomiting [Unknown]
  - Post lumbar puncture syndrome [Unknown]
